FAERS Safety Report 8388801-9 (Version None)
Quarter: 2012Q2

REPORT INFORMATION
  Report Type: 
  Country: None (occurrence: None)
  Receive Date: 20120528
  Receipt Date: 20120522
  Transmission Date: 20120825
  Serious: Yes (Death, Other)
  Sender: FDA-Public Use
  Company Number: US-AMGEN-USASP2012032240

PATIENT
  Sex: Male

DRUGS (5)
  1. XGEVA [Suspect]
  2. XGEVA [Suspect]
     Indication: METASTASES TO BONE
     Dosage: UNK
     Dates: start: 20120518
  3. ALIMTA [Concomitant]
  4. ANTINEOPLASTIC AGENTS [Concomitant]
     Indication: LUNG ADENOCARCINOMA
  5. NEULASTA [Suspect]
     Indication: NEUTROPENIA
     Dosage: UNK

REACTIONS (2)
  - HYPOCALCAEMIA [None]
  - PULMONARY EMBOLISM [None]
